FAERS Safety Report 6140672-7 (Version None)
Quarter: 2009Q2

REPORT INFORMATION
  Report Type: 
  Country: None (occurrence: None)
  Receive Date: 20090401
  Receipt Date: 20090401
  Transmission Date: 20091009
  Serious: Yes (Other)
  Sender: FDA-Public Use
  Company Number: None

PATIENT
  Age: 74 Year
  Sex: Female
  Weight: 72.5755 kg

DRUGS (2)
  1. CIPROFLOXACIN [Suspect]
     Indication: URINARY TRACT INFECTION
     Dosage: 500 MG BID PO
     Route: 048
     Dates: start: 20081015
  2. ALEVE (CAPLET) [Suspect]
     Indication: PAIN
     Dosage: 220 MG BID PO
     Route: 048

REACTIONS (2)
  - FEELING ABNORMAL [None]
  - OEDEMA PERIPHERAL [None]
